FAERS Safety Report 17063177 (Version 1)
Quarter: 2019Q4

REPORT INFORMATION
  Report Type: Spontaneous
  Country: US (occurrence: US)
  Receive Date: 20191119
  Receipt Date: 20191119
  Transmission Date: 20200122
  Serious: Yes (Hospitalization)
  Sender: FDA-Public Use
  Company Number: None

PATIENT
  Age: 77 Year
  Sex: Male
  Weight: 92 kg

DRUGS (3)
  1. HEPARIN [Suspect]
     Active Substance: HEPARIN SODIUM
     Indication: DEEP VEIN THROMBOSIS
     Route: 042
     Dates: start: 20190806, end: 20190818
  2. HEPARIN [Suspect]
     Active Substance: HEPARIN SODIUM
  3. HEPARIN [Suspect]
     Active Substance: HEPARIN SODIUM
     Indication: ATRIAL FIBRILLATION

REACTIONS (1)
  - Thrombocytopenia [None]

NARRATIVE: CASE EVENT DATE: 20190821
